FAERS Safety Report 13795118 (Version 2)
Quarter: 2017Q3

REPORT INFORMATION
  Report Type: Spontaneous
  Country: FR (occurrence: FR)
  Receive Date: 20170726
  Receipt Date: 20170804
  Transmission Date: 20171127
  Serious: Yes (Life-Threatening, Hospitalization)
  Sender: FDA-Public Use
  Company Number: FR-PFIZER INC-2017320941

PATIENT
  Age: 80 Year
  Sex: Female

DRUGS (5)
  1. NIPENT [Suspect]
     Active Substance: PENTOSTATIN
     Dosage: CYCLIC, 4TH COURSE
     Dates: start: 20170615, end: 20170615
  2. NIPENT [Suspect]
     Active Substance: PENTOSTATIN
     Indication: HAIRY CELL LEUKAEMIA
     Dosage: 4 MG/M2, EVERY 2 WEEKS
     Route: 042
     Dates: start: 201704, end: 20170510
  3. NIPENT [Suspect]
     Active Substance: PENTOSTATIN
     Dosage: UNK, CYCLIC, 5TH COURSE
     Dates: start: 20170629, end: 20170629
  4. COVERAM [Concomitant]
     Active Substance: AMLODIPINE\PERINDOPRIL
  5. DEDROGYL [Concomitant]
     Active Substance: CALCIFEDIOL

REACTIONS (2)
  - Pneumonia cryptococcal [Recovering/Resolving]
  - Opportunistic infection [Recovered/Resolved]

NARRATIVE: CASE EVENT DATE: 20170522
